FAERS Safety Report 21042778 (Version 1)
Quarter: 2022Q3

REPORT INFORMATION
  Report Type: Spontaneous
  Country: US (occurrence: None)
  Receive Date: 20220701
  Receipt Date: 20220701
  Transmission Date: 20221026
  Serious: No
  Sender: FDA-Public Use
  Company Number: None

PATIENT
  Age: 54 Year
  Sex: Female
  Weight: 117.84 kg

DRUGS (9)
  1. MEKINIST [Suspect]
     Active Substance: TRAMETINIB DIMETHYL SULFOXIDE
     Indication: Malignant melanoma
     Dosage: FREQUENCY : DAILY;?
     Route: 048
  2. TAFINLAR [Suspect]
     Active Substance: DABRAFENIB MESYLATE
     Indication: Malignant melanoma
     Dosage: FREQUENCY : TWICE A DAY;?
     Route: 048
  3. EMLA [Concomitant]
  4. ESCITALOPRAM [Concomitant]
  5. IBURPOFEN [Concomitant]
  6. ONDANSETRON [Concomitant]
  7. TRAZODONE [Concomitant]
  8. TYLENOL [Concomitant]
  9. VITAMIN D3 [Concomitant]

REACTIONS (1)
  - Uveitis [None]
